FAERS Safety Report 6074845-9 (Version None)
Quarter: 2009Q1

REPORT INFORMATION
  Report Type: 
  Country: None (occurrence: None)
  Receive Date: 20090212
  Receipt Date: 20090203
  Transmission Date: 20090719
  Serious: Yes (Hospitalization)
  Sender: FDA-Public Use
  Company Number: RO-AMGEN-US332140

PATIENT
  Age: 46 Year
  Sex: Male

DRUGS (3)
  1. ENBREL [Suspect]
     Indication: PSORIATIC ARTHROPATHY
     Route: 058
     Dates: start: 20081001, end: 20090120
  2. ISONIAZID [Concomitant]
     Indication: PROPHYLAXIS
     Route: 065
     Dates: start: 20080701
  3. EPIVIR [Concomitant]
     Route: 065

REACTIONS (4)
  - CONDITION AGGRAVATED [None]
  - OSTEOPOROSIS [None]
  - PSORIASIS [None]
  - PUSTULAR PSORIASIS [None]
